FAERS Safety Report 18202664 (Version 1)
Quarter: 2020Q3

REPORT INFORMATION
  Report Type: Spontaneous
  Country: US (occurrence: US)
  Receive Date: 20200827
  Receipt Date: 20200827
  Transmission Date: 20201103
  Serious: Yes (Hospitalization)
  Sender: FDA-Public Use
  Company Number: None

PATIENT
  Age: 81 Year
  Sex: Female

DRUGS (1)
  1. AMBRISENTAN [Suspect]
     Active Substance: AMBRISENTAN
     Route: 048

REACTIONS (5)
  - Zinc deficiency [None]
  - Hypokalaemia [None]
  - Anaemia [None]
  - Dehydration [None]
  - Iron deficiency [None]

NARRATIVE: CASE EVENT DATE: 20200827
